FAERS Safety Report 6221536-7 (Version None)
Quarter: 2009Q2

REPORT INFORMATION
  Report Type: 
  Country: None (occurrence: None)
  Receive Date: 20090610
  Receipt Date: 20090608
  Transmission Date: 20091009
  Serious: Yes (Death, Other)
  Sender: FDA-Public Use
  Company Number: PHEH2009US05672

PATIENT
  Sex: Male

DRUGS (3)
  1. AREDIA [Suspect]
     Dosage: MONTHLY
     Dates: end: 20070711
  2. THALIDOMIDE [Concomitant]
     Indication: MULTIPLE MYELOMA
  3. INTERFERON [Concomitant]
     Indication: MULTIPLE MYELOMA

REACTIONS (4)
  - ACUTE LEUKAEMIA [None]
  - HERPES ZOSTER DISSEMINATED [None]
  - MYELODYSPLASTIC SYNDROME [None]
  - SEPSIS [None]
